FAERS Safety Report 8241328-7 (Version None)
Quarter: 2012Q1

REPORT INFORMATION
  Report Type: 
  Country: None (occurrence: None)
  Receive Date: 20120328
  Receipt Date: 20120322
  Transmission Date: 20120608
  Serious: Yes (Other)
  Sender: FDA-Public Use
  Company Number: US-PFIZER INC-2012075300

PATIENT
  Sex: Female
  Weight: 68.027 kg

DRUGS (3)
  1. NORVASC [Concomitant]
     Indication: HYPERTENSION
     Dosage: UNK
  2. LATANOPROST [Suspect]
     Indication: GLAUCOMA
     Dosage: UNK
     Route: 047
     Dates: start: 20111201, end: 20120312
  3. XALATAN [Suspect]
     Indication: GLAUCOMA
     Dosage: ONE GTT IN EACH EYE ONCE AT EVERY NIGHT
     Route: 047
     Dates: end: 20111226

REACTIONS (6)
  - RASH GENERALISED [None]
  - INTRAOCULAR PRESSURE INCREASED [None]
  - MALAISE [None]
  - VISION BLURRED [None]
  - HYPERSENSITIVITY [None]
  - EYE PAIN [None]
